FAERS Safety Report 5444418-7 (Version None)
Quarter: 2007Q3

REPORT INFORMATION
  Report Type: 
  Country: None (occurrence: None)
  Receive Date: 20070831
  Receipt Date: 20070823
  Transmission Date: 20080115
  Serious: Yes (Death, Hospitalization)
  Sender: FDA-Public Use
  Company Number: FABR-12135

PATIENT
  Age: 52 Year
  Weight: 74.1 kg

DRUGS (1)
  1. FABRAZYME [Suspect]
     Indication: FABRY'S DISEASE
     Dosage: 70 MG, IV
     Route: 042
     Dates: start: 20020822, end: 20070801

REACTIONS (3)
  - ANGIOPATHY [None]
  - CARDIAC ARREST [None]
  - INFARCTION [None]
